FAERS Safety Report 25764338 (Version 1)
Quarter: 2025Q3

REPORT INFORMATION
  Report Type: Spontaneous
  Country: US (occurrence: US)
  Receive Date: 20250905
  Receipt Date: 20250905
  Transmission Date: 20251021
  Serious: No
  Sender: DOMPE FARMACEUTICI
  Company Number: US-FARMAPROD-202412-4349

PATIENT
  Sex: Male
  Weight: 86.64 kg

DRUGS (37)
  1. OXERVATE [Suspect]
     Active Substance: CENEGERMIN-BKBJ
     Indication: Neurotrophic keratopathy
     Route: 047
     Dates: start: 20241218
  2. PANTOPRAZOLE SODIUM [Concomitant]
     Active Substance: PANTOPRAZOLE SODIUM
  3. ASPIRIN [Concomitant]
     Active Substance: ASPIRIN
  4. MOUNJARO [Concomitant]
     Active Substance: TIRZEPATIDE
  5. INSULIN ASPART PROT MIX 70-30 [Concomitant]
  6. LISINOPRIL [Concomitant]
     Active Substance: LISINOPRIL
  7. METHOCARBAMOL [Concomitant]
     Active Substance: METHOCARBAMOL
  8. NOVOLOG [Concomitant]
     Active Substance: INSULIN ASPART
  9. LIDOCAINE\PRILOCAINE [Concomitant]
     Active Substance: LIDOCAINE\PRILOCAINE
  10. DIPHENHYDRAMINE HYDROCHLORIDE [Concomitant]
     Active Substance: DIPHENHYDRAMINE HYDROCHLORIDE
  11. ISONIAZID [Concomitant]
     Active Substance: ISONIAZID
  12. ATORVASTATIN CALCIUM [Concomitant]
     Active Substance: ATORVASTATIN CALCIUM
  13. CARVEDILOL [Concomitant]
     Active Substance: CARVEDILOL
  14. PEG-3350 AND ELECTROLYTES [Concomitant]
     Active Substance: POLYETHYLENE GLYCOL 3350\POTASSIUM CHLORIDE\SODIUM BICARBONATE\SODIUM CHLORIDE\SODIUM SULFATE
  15. NITROGLYCERIN [Concomitant]
     Active Substance: NITROGLYCERIN
  16. ACETAMINOPHEN\CODEINE PHOSPHATE [Concomitant]
     Active Substance: ACETAMINOPHEN\CODEINE PHOSPHATE
  17. PRAVASTATIN SODIUM [Concomitant]
     Active Substance: PRAVASTATIN SODIUM
  18. DICLOFENAC SODIUM [Concomitant]
     Active Substance: DICLOFENAC SODIUM
  19. LOKELMA [Concomitant]
     Active Substance: SODIUM ZIRCONIUM CYCLOSILICATE
  20. ARTIFICIAL TEARS [Concomitant]
  21. SILVER SULFADIAZINE [Concomitant]
     Active Substance: SILVER SULFADIAZINE
  22. ATRAC-TAIN [Concomitant]
  23. VITAMIN D2 [Concomitant]
     Active Substance: ERGOCALCIFEROL
  24. REFRESH CLASSIC [Concomitant]
     Active Substance: POLYVINYL ALCOHOL\POVIDONE
  25. TORSEMIDE [Concomitant]
     Active Substance: TORSEMIDE
  26. TRESIBA [Concomitant]
     Active Substance: INSULIN DEGLUDEC
  27. HUMALOG [Concomitant]
     Active Substance: INSULIN LISPRO
  28. FLUTICASONE PROPIONATE [Concomitant]
     Active Substance: FLUTICASONE PROPIONATE
  29. DIALYVITE 800 [Concomitant]
  30. MIDODRINE HYDROCHLORIDE [Concomitant]
     Active Substance: MIDODRINE HYDROCHLORIDE
  31. BRILINTA [Concomitant]
     Active Substance: TICAGRELOR
  32. VELPHORO [Concomitant]
     Active Substance: SUCROFERRIC OXYHYDROXIDE
  33. HYDROXYZINE HYDROCHLORIDE [Concomitant]
     Active Substance: HYDROXYZINE HYDROCHLORIDE
  34. CARVEDILOL [Concomitant]
     Active Substance: CARVEDILOL
  35. PRAVASTATIN SODIUM [Concomitant]
     Active Substance: PRAVASTATIN SODIUM
  36. TRESIBA FLEXTOUCH U-200 [Concomitant]
  37. HUMALOG KWIKPEN [Concomitant]
     Active Substance: INSULIN LISPRO

REACTIONS (1)
  - Eye pain [Recovering/Resolving]
